FAERS Safety Report 13440099 (Version 1)
Quarter: 2017Q2

REPORT INFORMATION
  Report Type: Spontaneous
  Country: JP (occurrence: JP)
  Receive Date: 20170413
  Receipt Date: 20170413
  Transmission Date: 20170830
  Serious: Yes (Life-Threatening, Other)
  Sender: FDA-Public Use
  Company Number: JP-LUPIN PHARMACEUTICALS INC.-E2B_00007140

PATIENT

DRUGS (1)
  1. MORPHINE [Suspect]
     Active Substance: MORPHINE
     Indication: CANCER PAIN
     Dosage: UNK UNK,UNK,
     Route: 042

REACTIONS (2)
  - Respiratory depression [Recovering/Resolving]
  - Overdose [Unknown]
